FAERS Safety Report 14013646 (Version 3)
Quarter: 2017Q4

REPORT INFORMATION
  Report Type: Spontaneous
  Country: CH (occurrence: CH)
  Receive Date: 20170926
  Receipt Date: 20171016
  Transmission Date: 20180321
  Serious: Yes (Death, Hospitalization, Other)
  Sender: FDA-Public Use
  Company Number: PHHY2017CH141140

PATIENT
  Sex: Male

DRUGS (8)
  1. CONCOR [Concomitant]
     Active Substance: BISOPROLOL FUMARATE
     Indication: PRODUCT USED FOR UNKNOWN INDICATION
     Route: 065
  2. ENTRESTO [Suspect]
     Active Substance: SACUBITRIL\VALSARTAN
     Indication: ARRHYTHMIA
  3. ALDACTONE [Concomitant]
     Active Substance: SPIRONOLACTONE
     Indication: PRODUCT USED FOR UNKNOWN INDICATION
     Route: 065
  4. ENTRESTO [Suspect]
     Active Substance: SACUBITRIL\VALSARTAN
     Indication: CARDIAC FAILURE CHRONIC
     Dosage: 50 MG, BID
     Route: 065
  5. MARCOUMAR [Concomitant]
     Active Substance: PHENPROCOUMON
     Indication: PRODUCT USED FOR UNKNOWN INDICATION
     Route: 065
  6. ENTRESTO [Suspect]
     Active Substance: SACUBITRIL\VALSARTAN
     Indication: CORONARY ARTERY DISEASE
  7. COLCHICINE. [Suspect]
     Active Substance: COLCHICINE
     Indication: GOUT
     Dosage: 2 DF, QD
     Route: 065
     Dates: end: 20170906
  8. METOLAZONE. [Concomitant]
     Active Substance: METOLAZONE
     Indication: FLUID BALANCE NEGATIVE
     Route: 065

REACTIONS (25)
  - International normalised ratio abnormal [Unknown]
  - Dizziness [Unknown]
  - Nocturia [Unknown]
  - Condition aggravated [Unknown]
  - Back pain [Unknown]
  - Aortic dissection [Unknown]
  - Diverticulitis [Unknown]
  - Dysuria [Unknown]
  - Abdominal pain [Unknown]
  - Osteoporosis [Unknown]
  - Haematemesis [Unknown]
  - Pulmonary fibrosis [Unknown]
  - Gout [Unknown]
  - Diarrhoea [Unknown]
  - Paraesthesia [Unknown]
  - Spinal pain [Unknown]
  - Lumbar vertebral fracture [Unknown]
  - Vitamin D deficiency [Unknown]
  - Pericardial calcification [Unknown]
  - Hypotension [Unknown]
  - Paralysis [Unknown]
  - Suicidal behaviour [Unknown]
  - Lymphadenopathy [Unknown]
  - Death [Fatal]
  - Arteriosclerosis [Unknown]

NARRATIVE: CASE EVENT DATE: 20170824
